FAERS Safety Report 19666492 (Version 1)
Quarter: 2021Q3

REPORT INFORMATION
  Report Type: Spontaneous
  Country: US (occurrence: US)
  Receive Date: 20210806
  Receipt Date: 20210806
  Transmission Date: 20211014
  Serious: No
  Sender: FDA-Public Use
  Company Number: None

PATIENT
  Age: 60 Year
  Sex: Female
  Weight: 59 kg

DRUGS (5)
  1. EPINEPHRINE. [Concomitant]
     Active Substance: EPINEPHRINE
     Dates: start: 20210802, end: 20210802
  2. DIPHENHYRAMINE [Concomitant]
     Active Substance: DIPHENHYDRAMINE
     Dates: start: 20210802, end: 20210802
  3. CEFAZOLIN [Suspect]
     Active Substance: CEFAZOLIN
     Indication: PROPHYLAXIS
     Dosage: ?          OTHER FREQUENCY:1 INTRA + POST OP;?
     Route: 040
     Dates: start: 20210802, end: 20210802
  4. CEFAZOLIN [Suspect]
     Active Substance: CEFAZOLIN
     Indication: LIMB OPERATION
     Dosage: ?          OTHER FREQUENCY:1 INTRA + POST OP;?
     Route: 040
     Dates: start: 20210802, end: 20210802
  5. METHYLPREDNISOLONE. [Concomitant]
     Active Substance: METHYLPREDNISOLONE
     Dates: start: 20210802, end: 20210802

REACTIONS (3)
  - Hypertension [None]
  - Tachycardia [None]
  - Urticaria [None]

NARRATIVE: CASE EVENT DATE: 20210802
